FAERS Safety Report 5041145-5 (Version None)
Quarter: 2006Q2

REPORT INFORMATION
  Report Type: 
  Country: None (occurrence: None)
  Receive Date: 20060626
  Receipt Date: 20060614
  Transmission Date: 20061013
  Serious: Yes (Hospitalization)
  Sender: FDA-Public Use
  Company Number: MEDI-0004658

PATIENT
  Age: 66 Year
  Sex: Male

DRUGS (21)
  1. ETHYOL [Suspect]
     Indication: RADIOTHERAPY
     Dosage: 500 MG, 5 IN 5 D, INTRAVENOUS
     Route: 042
     Dates: start: 20060327, end: 20060502
  2. ETHYOL [Suspect]
  3. ETHYOL [Suspect]
  4. ETHYOL [Suspect]
  5. ETHYOL [Suspect]
  6. ETHYOL [Suspect]
  7. RADIATION THERAPY [Concomitant]
  8. ERBITUX [Concomitant]
  9. KYTRIL [Concomitant]
  10. ZANTAC [Concomitant]
  11. REGLAN [Concomitant]
  12. ATENOLOL [Concomitant]
  13. IMDUR [Concomitant]
  14. CLINDAMYCIN [Concomitant]
  15. NYSTATIN [Concomitant]
  16. COUMADIN [Concomitant]
  17. ASPIRIN [Concomitant]
  18. ISOSORBIDE (ISOSORBIDE) [Concomitant]
  19. LIPITOR [Concomitant]
  20. ZETIA [Concomitant]
  21. MINOCYCLINE HCL [Concomitant]

REACTIONS (14)
  - APNOEIC ATTACK [None]
  - ARRHYTHMIA [None]
  - ATRIOVENTRICULAR BLOCK [None]
  - BUNDLE BRANCH BLOCK LEFT [None]
  - CONDITION AGGRAVATED [None]
  - COUGH [None]
  - DEHYDRATION [None]
  - DILATATION VENTRICULAR [None]
  - FALL [None]
  - HYPOVOLAEMIA [None]
  - PULSE ABSENT [None]
  - SINUS BRADYCARDIA [None]
  - STOMATITIS [None]
  - SYNCOPE VASOVAGAL [None]
